FAERS Safety Report 10143238 (Version 2)
Quarter: 2014Q3

REPORT INFORMATION
  Report Type: Spontaneous
  Country: FR (occurrence: FR)
  Receive Date: 20140430
  Receipt Date: 20140924
  Transmission Date: 20150326
  Serious: Yes (Life-Threatening, Other)
  Sender: FDA-Public Use
  Company Number: FR-MERCK-1404FRA013197

PATIENT
  Age: 53 Year
  Sex: Female

DRUGS (4)
  1. PROPOFOL. [Concomitant]
     Active Substance: PROPOFOL
     Indication: ANAESTHESIA
     Dosage: 300 MG, ONCE
     Route: 042
     Dates: start: 20140407, end: 20140407
  2. KETAMINE HYDROCHLORIDE. [Suspect]
     Active Substance: KETAMINE HYDROCHLORIDE
     Indication: ANAESTHESIA
     Dosage: 10 MG, ONCE
     Route: 042
     Dates: start: 20140407, end: 20140407
  3. ESMERON [Suspect]
     Active Substance: ROCURONIUM BROMIDE
     Indication: ANAESTHESIA
     Dosage: 100 MG, ONCE
     Route: 042
     Dates: start: 20140407, end: 20140407
  4. ULTIVA [Suspect]
     Active Substance: REMIFENTANIL HYDROCHLORIDE
     Indication: ANAESTHESIA
     Dosage: 200 MICROGRAM, ONCE
     Route: 042
     Dates: start: 20140407, end: 20140407

REACTIONS (4)
  - Sinus tachycardia [Recovered/Resolved]
  - Rash [Recovered/Resolved]
  - Circulatory collapse [Recovered/Resolved]
  - Anaphylactic shock [Recovered/Resolved]

NARRATIVE: CASE EVENT DATE: 20140407
